FAERS Safety Report 4462049-2 (Version None)
Quarter: 2004Q3

REPORT INFORMATION
  Report Type: 
  Country: None (occurrence: None)
  Receive Date: 20040929
  Receipt Date: 20040824
  Transmission Date: 20050211
  Serious: Yes (Hospitalization)
  Sender: FDA-Public Use
  Company Number: US-AMGEN-KDL088468

PATIENT
  Sex: Female

DRUGS (9)
  1. ENBREL [Suspect]
     Indication: RHEUMATOID ARTHRITIS
     Route: 058
     Dates: start: 20040709
  2. PREDNISONE [Concomitant]
  3. TENORMIN [Concomitant]
  4. LEVOXYL [Concomitant]
  5. MICARDIS [Concomitant]
  6. PROTONIX [Concomitant]
  7. LIPITOR [Concomitant]
  8. NOVOLIN 70/30 [Concomitant]
  9. CARDIZEM [Concomitant]

REACTIONS (8)
  - AMNESIA [None]
  - AURA [None]
  - BLINDNESS [None]
  - DIZZINESS [None]
  - HEADACHE [None]
  - MIGRAINE WITH AURA [None]
  - PALPITATIONS [None]
  - VISUAL ACUITY REDUCED [None]
